FAERS Safety Report 6708159-8 (Version None)
Quarter: 2010Q2

REPORT INFORMATION
  Report Type: 
  Country: None (occurrence: None)
  Receive Date: 20100503
  Receipt Date: 20090605
  Transmission Date: 20101027
  Serious: No
  Sender: FDA-Public Use
  Company Number: US-ASTRAZENECA-2009UW14446

PATIENT
  Sex: Male
  Weight: 68 kg

DRUGS (2)
  1. NEXIUM [Suspect]
     Dosage: 40 MG
     Route: 048
  2. PRILOSEC OTC [Concomitant]

REACTIONS (4)
  - ABDOMINAL PAIN UPPER [None]
  - FLATULENCE [None]
  - GASTROENTERITIS VIRAL [None]
  - INAPPROPRIATE SCHEDULE OF DRUG ADMINISTRATION [None]
